FAERS Safety Report 24847896 (Version 1)
Quarter: 2025Q1

REPORT INFORMATION
  Report Type: Spontaneous
  Country: US (occurrence: US)
  Receive Date: 20250116
  Receipt Date: 20250116
  Transmission Date: 20250409
  Serious: Yes (Hospitalization, Other)
  Sender: SANOFI AVENTIS
  Company Number: US-SA-2025SA012040

PATIENT
  Age: 58 Year
  Sex: Female
  Weight: 53.2 kg

DRUGS (17)
  1. AUBAGIO [Suspect]
     Active Substance: TERIFLUNOMIDE
     Indication: Multiple sclerosis
     Dosage: 14 MG QD
     Dates: start: 2017
  2. KESIMPTA [Suspect]
     Active Substance: OFATUMUMAB
     Indication: Relapsing-remitting multiple sclerosis
     Dosage: 20 MG Q4W
     Route: 058
     Dates: start: 20220521
  3. VITAMIN D [Concomitant]
     Active Substance: VITAMIN D NOS
  4. LUTEIN [Concomitant]
     Active Substance: LUTEIN
     Dosage: 1 DF, QD
  5. PROBIOTICS NOS [Concomitant]
     Active Substance: PROBIOTICS NOS
  6. HERBALS\TURMERIC [Concomitant]
     Active Substance: HERBALS\TURMERIC
     Dosage: UNK, QD
  7. MIRALAX [Concomitant]
     Active Substance: POLYETHYLENE GLYCOL 3350
  8. ALFA LIPOIC ACID [Concomitant]
     Dosage: 1 DF, BID
  9. CALCIUM [Concomitant]
     Active Substance: CALCIUM
  10. BIOTIN [Concomitant]
     Active Substance: BIOTIN
     Route: 048
  11. LYRICA [Concomitant]
     Active Substance: PREGABALIN
     Dosage: 1 DF, TID
     Route: 048
  12. PAMELOR [Concomitant]
     Active Substance: NORTRIPTYLINE HYDROCHLORIDE
     Dosage: 150 MG, QD
     Route: 048
  13. ZANAFLEX [Concomitant]
     Active Substance: TIZANIDINE HYDROCHLORIDE
     Dosage: 2.5 DF, QD
     Route: 048
  14. BENADRYL ALLERGY [Concomitant]
     Active Substance: DIPHENHYDRAMINE HYDROCHLORIDE
  15. GLYCOLAX [Concomitant]
     Active Substance: POLYETHYLENE GLYCOL 3350
     Route: 048
  16. DALFAMPRIDINE [Concomitant]
     Active Substance: DALFAMPRIDINE
  17. ENSURE [Concomitant]
     Active Substance: AMINO ACIDS\DEXTROSE\ELECTROLYTES NOS\SOYBEAN OIL\VITAMINS

REACTIONS (19)
  - Gait inability [Unknown]
  - Expanded disability status scale score increased [Unknown]
  - Paraparesis [Unknown]
  - Multiple sclerosis relapse [Unknown]
  - Fatigue [Unknown]
  - Urinary incontinence [Unknown]
  - Micturition urgency [Unknown]
  - Hypoaesthesia [Unknown]
  - Paraesthesia [Unknown]
  - Memory impairment [Unknown]
  - Disturbance in attention [Unknown]
  - Muscle spasticity [Unknown]
  - Muscular weakness [Unknown]
  - Condition aggravated [Unknown]
  - Pyrexia [Unknown]
  - Vision blurred [Unknown]
  - Condition aggravated [Unknown]
  - Walking aid user [Unknown]
  - Balance disorder [Unknown]

NARRATIVE: CASE EVENT DATE: 20220201
